FAERS Safety Report 17652445 (Version 1)
Quarter: 2020Q2

REPORT INFORMATION
  Report Type: Spontaneous
  Country: US (occurrence: US)
  Receive Date: 20200409
  Receipt Date: 20200409
  Transmission Date: 20200713
  Serious: Yes (Hospitalization)
  Sender: FDA-Public Use
  Company Number: US-CELLTRION-2020-US-006618

PATIENT
  Age: 63 Year
  Sex: Female

DRUGS (1)
  1. LAMOTRIGINE (NON-SPECIFIC) [Suspect]
     Active Substance: LAMOTRIGINE
     Indication: BIPOLAR DISORDER
     Route: 065

REACTIONS (1)
  - Pericarditis [Recovered/Resolved]
